FAERS Safety Report 4689046-6 (Version None)
Quarter: 2005Q2

REPORT INFORMATION
  Report Type: 
  Country: None (occurrence: None)
  Receive Date: 20050608
  Receipt Date: 20050328
  Transmission Date: 20051028
  Serious: No
  Sender: FDA-Public Use
  Company Number: 2005-BP-05142BP

PATIENT
  Sex: Male
  Weight: 125 kg

DRUGS (8)
  1. SPIRIVA [Suspect]
     Indication: ASTHMA
     Dosage: 18 MCG (18 MCG, QD), IH
     Route: 055
     Dates: start: 20050326
  2. SPIRIVA [Suspect]
     Indication: CHRONIC OBSTRUCTIVE PULMONARY DISEASE
     Dosage: 18 MCG (18 MCG, QD), IH
     Route: 055
     Dates: start: 20050326
  3. PREDNISONE [Concomitant]
  4. PLAVIX [Concomitant]
  5. VERAPAMIL [Concomitant]
  6. ALBUTEROL [Concomitant]
  7. LASIX [Concomitant]
  8. K-DUR 10 [Concomitant]

REACTIONS (6)
  - DRY MOUTH [None]
  - DRY THROAT [None]
  - DYSPNOEA [None]
  - MIDDLE INSOMNIA [None]
  - MUCOSAL DISCOLOURATION [None]
  - PRODUCTIVE COUGH [None]
